FAERS Safety Report 16557531 (Version 7)
Quarter: 2019Q4

REPORT INFORMATION
  Report Type: Spontaneous
  Country: JP (occurrence: JP)
  Receive Date: 20190711
  Receipt Date: 20191106
  Transmission Date: 20200122
  Serious: Yes (Hospitalization, Other)
  Sender: FDA-Public Use
  Company Number: JP-TERSERA THERAPEUTICS LLC-2019TRS001159

PATIENT

DRUGS (4)
  1. ZOLADEX [Suspect]
     Active Substance: GOSERELIN ACETATE
     Indication: PROSTATE CANCER
     Dosage: 10.8 MILLIGRAM EVERY 3 MONTHS
     Route: 058
     Dates: start: 20170131, end: 20190618
  2. URIEF [Concomitant]
     Active Substance: SILODOSIN
     Indication: BENIGN PROSTATIC HYPERPLASIA
     Dosage: 2 MILLIGRAM, BID
     Route: 048
  3. TAKECAB [Concomitant]
     Active Substance: VONOPRAZAN FUMURATE
     Indication: HYPERTENSION
     Dosage: 10 MILLIGRAM, QD
     Route: 048
  4. CASODEX [Concomitant]
     Active Substance: BICALUTAMIDE
     Indication: PROSTATE CANCER
     Dosage: 80 MILLIGRAM, QD
     Route: 048
     Dates: start: 20170131, end: 20190618

REACTIONS (3)
  - Gastrointestinal injury [Recovering/Resolving]
  - Procedural complication [Recovering/Resolving]
  - Mesenteric haemorrhage [Recovering/Resolving]

NARRATIVE: CASE EVENT DATE: 20190618
